FAERS Safety Report 5568449-1 (Version None)
Quarter: 2007Q4

REPORT INFORMATION
  Report Type: 
  Country: None (occurrence: None)
  Receive Date: 20071220
  Receipt Date: 20071218
  Transmission Date: 20080405
  Serious: Yes (Hospitalization)
  Sender: FDA-Public Use
  Company Number: US-WYE-H00420807

PATIENT
  Sex: Male
  Weight: 99 kg

DRUGS (15)
  1. CEFTRIAXONE [Suspect]
     Indication: APPENDICITIS
     Dosage: 2 GRAM DAILY
     Route: 042
     Dates: start: 20070924, end: 20070927
  2. MORPHINE [Concomitant]
     Indication: PAIN
     Route: 042
     Dates: start: 20070924, end: 20071001
  3. LACTATED RINGER'S [Concomitant]
     Indication: PROPHYLAXIS
     Route: 042
     Dates: start: 20070924, end: 20070927
  4. DEXTROSE [Concomitant]
     Indication: PROPHYLAXIS
     Dosage: 1000 ML/MG EVERY 4 HOURS AS NEEDED
     Route: 042
     Dates: start: 20070924, end: 20070924
  5. ESOMEPRAZOLE [Concomitant]
     Indication: GASTROOESOPHAGEAL REFLUX PROPHYLAXIS
     Route: 042
     Dates: start: 20070924, end: 20070926
  6. GLUCOSE [Concomitant]
     Indication: PROPHYLAXIS
     Dosage: 50 ML AS NEEDED
     Route: 042
     Dates: start: 20070924, end: 20070927
  7. ACETAMINOPHEN [Concomitant]
     Indication: PAIN
     Route: 050
     Dates: start: 20070924, end: 20070927
  8. HEPARIN [Concomitant]
     Indication: PROPHYLAXIS
     Route: 058
     Dates: start: 20070924, end: 20070925
  9. INSULIN [Concomitant]
     Indication: PROPHYLAXIS
     Dosage: EVERY 4 HOURS
     Route: 048
     Dates: start: 20070924, end: 20070926
  10. RANITIDINE HCL [Concomitant]
     Indication: GASTROOESOPHAGEAL REFLUX DISEASE
     Route: 050
     Dates: start: 20070905, end: 20070927
  11. BISACODYL [Concomitant]
     Route: 048
     Dates: start: 20070927, end: 20070929
  12. TEMAZEPAM [Concomitant]
     Indication: INSOMNIA
     Dosage: 15 MG AS NEEDED
     Route: 050
     Dates: start: 20070927, end: 20070928
  13. MIDAZOLAM HYDROCHLORIDE [Concomitant]
     Indication: PAIN
     Dosage: UNKNOWN
     Dates: start: 20070925, end: 20070925
  14. KETOROLAC [Concomitant]
     Indication: PAIN
     Dates: start: 20070925, end: 20070929
  15. METRONIDAZOLE HCL [Suspect]
     Indication: APPENDICITIS
     Route: 042
     Dates: start: 20070924, end: 20070927

REACTIONS (1)
  - RENAL TUBULAR ACIDOSIS [None]
